FAERS Safety Report 7136558-1 (Version None)
Quarter: 2010Q4

REPORT INFORMATION
  Report Type: 
  Country: None (occurrence: None)
  Receive Date: 20101206
  Receipt Date: 20101122
  Transmission Date: 20110411
  Serious: No
  Sender: FDA-Public Use
  Company Number: US-BIOGENIDEC-2010BI041586

PATIENT
  Sex: Female

DRUGS (4)
  1. AVONEX [Suspect]
     Indication: MULTIPLE SCLEROSIS
     Route: 030
     Dates: start: 19960501, end: 20030101
  2. AVONEX [Suspect]
     Route: 030
     Dates: start: 20030101
  3. OXYBUTYNIN [Concomitant]
     Indication: URINARY INCONTINENCE
     Route: 048
  4. PROVIGIL [Concomitant]
     Indication: ASTHENIA
     Route: 048

REACTIONS (4)
  - GASTROOESOPHAGEAL REFLUX DISEASE [None]
  - MULTIPLE SCLEROSIS RELAPSE [None]
  - NERVOUS SYSTEM DISORDER [None]
  - STRESS [None]
